FAERS Safety Report 14282911 (Version 1)
Quarter: 2017Q4

REPORT INFORMATION
  Report Type: Spontaneous
  Country: US (occurrence: US)
  Receive Date: 20171213
  Receipt Date: 20171213
  Transmission Date: 20180321
  Serious: No
  Sender: FDA-Public Use
  Company Number: US-PERNIX THERAPEUTICS-2017PT000119

PATIENT
  Sex: Female
  Weight: 83.9 kg

DRUGS (1)
  1. ZOHYDRO [Suspect]
     Active Substance: HYDROCODONE BITARTRATE
     Indication: DISABILITY
     Dosage: 50 MG, 4 TIMES DAILY
     Route: 048

REACTIONS (1)
  - Depression [Unknown]
